FAERS Safety Report 16892292 (Version 1)
Quarter: 2019Q4

REPORT INFORMATION
  Report Type: Spontaneous
  Country: BR (occurrence: BR)
  Receive Date: 20191007
  Receipt Date: 20191007
  Transmission Date: 20200122
  Serious: Yes (Other)
  Sender: FDA-Public Use
  Company Number: BR-SA-2019SA273207

PATIENT
  Age: 83 Year
  Sex: Male
  Weight: 71 kg

DRUGS (2)
  1. TAXOTERE [Suspect]
     Active Substance: DOCETAXEL
     Dosage: 57 MG, D1,D18 AND D15, EVERY 28 DAYS
     Route: 042
     Dates: start: 20190729, end: 20190729
  2. TAXOTERE [Suspect]
     Active Substance: DOCETAXEL
     Dosage: 57 MG, D1,D18 AND D15, EVERY 28 DAYS
     Route: 042

REACTIONS (2)
  - Peripheral venous disease [Not Recovered/Not Resolved]
  - Burning sensation [Unknown]

NARRATIVE: CASE EVENT DATE: 20190805
